FAERS Safety Report 20790509 (Version 2)
Quarter: 2022Q2

REPORT INFORMATION
  Report Type: Spontaneous
  Country: CA (occurrence: CA)
  Receive Date: 20220505
  Receipt Date: 20220518
  Transmission Date: 20220721
  Serious: Yes (Hospitalization)
  Sender: FDA-Public Use
  Company Number: CA-TEVA-2022-CA-2033124

PATIENT
  Age: 10 Year
  Sex: Female

DRUGS (3)
  1. CISPLATIN [Suspect]
     Active Substance: CISPLATIN
     Indication: Osteosarcoma
     Dosage: ADMINISTERED 2 CYCLES AS PART NEOADJUVANT CHEMOTHERAPY AND 4 CYCLES AS PART ADJUVANT CHEMOTHERAPY.
     Route: 065
  2. DOXORUBICIN [Suspect]
     Active Substance: DOXORUBICIN
     Indication: Osteosarcoma
     Dosage: ADMINISTERED 2 CYCLES AS PART NEOADJUVANT CHEMOTHERAPY AND 4 CYCLES AS PART ADJUVANT CHEMOTHERAPY.
     Route: 065
  3. METHOTREXATE [Suspect]
     Active Substance: METHOTREXATE
     Indication: Osteosarcoma
     Dosage: ADMINISTERED 2 CYCLES AS PART NEOADJUVANT CHEMOTHERAPY AND 4 CYCLES AS PART ADJUVANT CHEMOTHERAPY...
     Route: 065

REACTIONS (2)
  - Hypercalcaemia [Unknown]
  - Renal impairment [Unknown]
